FAERS Safety Report 5564014-0 (Version None)
Quarter: 2007Q4

REPORT INFORMATION
  Report Type: 
  Country: None (occurrence: None)
  Receive Date: 20071217
  Receipt Date: 20071211
  Transmission Date: 20080405
  Serious: Yes (Hospitalization, Other)
  Sender: FDA-Public Use
  Company Number: US-ELI_LILLY_AND_COMPANY-US200710006432

PATIENT
  Sex: Female

DRUGS (4)
  1. HUMULIN N [Suspect]
     Dosage: UNK, AS NEEDED
  2. HUMULIN R [Suspect]
     Dosage: UNK, AS NEEDED
  3. METFORMIN HCL [Concomitant]
     Dosage: 1000 MG, 2/D
  4. SYNTHROID [Concomitant]
     Dosage: 0.15 UG, DAILY (1/D)

REACTIONS (10)
  - BACK INJURY [None]
  - BLOOD GLUCOSE INCREASED [None]
  - FALL [None]
  - HEADACHE [None]
  - HORMONE LEVEL ABNORMAL [None]
  - MULTIPLE ENDOCRINE ADENOMATOSIS [None]
  - SPINAL LAMINECTOMY [None]
  - STRESS [None]
  - THYROID CANCER [None]
  - VISION BLURRED [None]
